FAERS Safety Report 6817812-7 (Version None)
Quarter: 2010Q3

REPORT INFORMATION
  Report Type: 
  Country: None (occurrence: None)
  Receive Date: 20100706
  Receipt Date: 20100624
  Transmission Date: 20110219
  Serious: Yes (Hospitalization, Other)
  Sender: FDA-Public Use
  Company Number: BR-ELI_LILLY_AND_COMPANY-BR201006006893

PATIENT
  Sex: Female
  Weight: 56 kg

DRUGS (3)
  1. FORTEO [Suspect]
     Indication: OSTEOPOROSIS
     Dosage: UNK, DAILY (1/D)
     Route: 058
     Dates: start: 20081201
  2. SOMALGIN [Concomitant]
     Dosage: 100 MG, DAILY (1/D)
     Route: 048
  3. BONIVA [Concomitant]
     Indication: OSTEOPOROSIS
     Dosage: UNK, OTHER
     Route: 042
     Dates: start: 20100501

REACTIONS (2)
  - ACCIDENT [None]
  - WRIST FRACTURE [None]
